FAERS Safety Report 4445823-8 (Version None)
Quarter: 2004Q3

REPORT INFORMATION
  Report Type: 
  Country: None (occurrence: None)
  Receive Date: 20040903
  Receipt Date: 20040819
  Transmission Date: 20050211
  Serious: Yes (Death, Hospitalization)
  Sender: FDA-Public Use
  Company Number: 04P-163-0270998-00

PATIENT
  Age: 68 Year
  Sex: Female

DRUGS (5)
  1. SYNTHROID [Suspect]
     Indication: HYPOTHYROIDISM
     Dosage: 25 MCG, 1 IN 1 D, PER ORAL; YEARS
     Route: 048
     Dates: end: 20040801
  2. FLUOXETINE HCL [Concomitant]
  3. ALPRAZOLAM [Concomitant]
  4. ALENDRONATE SODIUM [Concomitant]
  5. QUETIAPINE [Concomitant]

REACTIONS (2)
  - CEREBRAL THROMBOSIS [None]
  - TRANSIENT ISCHAEMIC ATTACK [None]
